FAERS Safety Report 8188334-9 (Version None)
Quarter: 2012Q1

REPORT INFORMATION
  Report Type: 
  Country: None (occurrence: None)
  Receive Date: 20120221
  Receipt Date: 20110817
  Transmission Date: 20120608
  Serious: Yes (Hospitalization)
  Sender: FDA-Public Use
  Company Number: PHHY2011US15626

PATIENT
  Age: 18 Year
  Sex: Male

DRUGS (6)
  1. PULMOZYME [Concomitant]
  2. CAYSTON [Concomitant]
  3. AZITHROMYCIN [Concomitant]
  4. ZENPEP [Concomitant]
  5. HYPERSAL [Concomitant]
  6. TOBI [Suspect]
     Indication: CYSTIC FIBROSIS
     Dosage: 300 MG, BID ^Q 28 DAY^,INHALATION
     Route: 055
     Dates: end: 20110310

REACTIONS (2)
  - PULMONARY FUNCTION TEST DECREASED [None]
  - WEIGHT INCREASED [None]
